FAERS Safety Report 8956062 (Version 1)
Quarter: 2012Q4

REPORT INFORMATION
  Report Type: Report from Study
  Country: US (occurrence: US)
  Receive Date: 20121210
  Receipt Date: 20121210
  Transmission Date: 20130627
  Serious: Yes (Hospitalization)
  Sender: FDA-Public Use
  Company Number: US-MERCK-1212USA002315

PATIENT
  Age: 66 Year
  Sex: Male

DRUGS (4)
  1. VORINOSTAT [Suspect]
     Dosage: UNK UNK, qd
     Dates: start: 20111230
  2. VORINOSTAT [Suspect]
     Dosage: 300 mg, qd
     Dates: start: 20121115, end: 20121130
  3. LENALIDOMIDE [Suspect]
     Dosage: UNK
     Dates: start: 20111230
  4. LENALIDOMIDE [Suspect]
     Dosage: 20 mg, qd cycle 12 days 1-21 of a 28 day cycle
     Dates: start: 20121115, end: 20121130

REACTIONS (2)
  - Influenza [Recovered/Resolved]
  - Pneumonia [Recovered/Resolved]
